FAERS Safety Report 20430675 (Version 1)
Quarter: 2022Q1

REPORT INFORMATION
  Report Type: Report from Study
  Country: US (occurrence: US)
  Receive Date: 20220204
  Receipt Date: 20220204
  Transmission Date: 20220423
  Serious: Yes (Death, Hospitalization)
  Sender: FDA-Public Use
  Company Number: US-SERVIER-S21001275

PATIENT

DRUGS (10)
  1. PEGASPARGASE [Suspect]
     Active Substance: PEGASPARGASE
     Indication: Acute lymphocytic leukaemia
     Dosage: 1750 IU/M2, 1X/2WKS
     Route: 042
     Dates: start: 20200503, end: 20210129
  2. DEXAMETHASONE [Suspect]
     Active Substance: DEXAMETHASONE
     Indication: Acute lymphocytic leukaemia
     Dosage: 6 MG/M2. DAYS 1-5 OF EACH 3-WEEK CYCLE
     Route: 048
     Dates: start: 20200508, end: 20210202
  3. MERCAPTOPURINE [Suspect]
     Active Substance: MERCAPTOPURINE
     Indication: Acute lymphocytic leukaemia
     Dosage: 50 MG/M2
     Route: 048
     Dates: start: 20200606, end: 20210206
  4. METHOTREXATE [Suspect]
     Active Substance: METHOTREXATE
     Indication: Acute lymphocytic leukaemia
     Dosage: 30 MG/M2, DAYS 1, 8 AND 15 OF EACH 3-WEEK CYCLE
     Route: 042
     Dates: start: 20200828, end: 20210205
  5. METHOTREXATE [Suspect]
     Active Substance: METHOTREXATE
     Dosage: 12 MG, EVERY 9-WEEKS
     Route: 037
     Dates: start: 20200605, end: 20201218
  6. VINCRISTINE SULFATE [Suspect]
     Active Substance: VINCRISTINE SULFATE
     Indication: Acute lymphocytic leukaemia
     Dosage: 2 MG/M2, DAY 1 OF EACH 3-WEEK CYCLE
     Route: 042
     Dates: start: 20200511, end: 20210129
  7. DOXORUBICIN HYDROCHLORIDE [Suspect]
     Active Substance: DOXORUBICIN HYDROCHLORIDE
     Indication: Acute lymphocytic leukaemia
     Dosage: 30 MG/M2
     Route: 042
     Dates: start: 20200828, end: 20210129
  8. DEXRAZOXANE [Suspect]
     Active Substance: DEXRAZOXANE
     Indication: Acute lymphocytic leukaemia
     Dosage: 300 MG/M2, DAY 1 OF EACH 3-WEEK CYCLE
     Route: 042
     Dates: start: 20200828, end: 20210129
  9. CYTARABINE [Suspect]
     Active Substance: CYTARABINE
     Indication: Acute lymphocytic leukaemia
     Dosage: 40 MG, EVERY 9 WEEKS
     Route: 037
     Dates: start: 20200506, end: 20201218
  10. HYDROCORTISONE [Suspect]
     Active Substance: HYDROCORTISONE
     Indication: Acute lymphocytic leukaemia
     Dosage: 15 MG, EVERY 9 WEEKS
     Route: 037
     Dates: start: 20200807, end: 20201218

REACTIONS (1)
  - Septic shock [Fatal]

NARRATIVE: CASE EVENT DATE: 20210206
